FAERS Safety Report 6194535-1 (Version None)
Quarter: 2009Q2

REPORT INFORMATION
  Report Type: 
  Country: None (occurrence: None)
  Receive Date: 20090515
  Receipt Date: 20090430
  Transmission Date: 20091009
  Serious: Yes (Other)
  Sender: FDA-Public Use
  Company Number: 2009S1007537

PATIENT
  Age: 47 Year
  Sex: Male
  Weight: 97 kg

DRUGS (4)
  1. AMLODIPINE [Suspect]
     Indication: HYPERTENSION
     Dosage: 10 MG ORAL
     Route: 048
     Dates: start: 20090323, end: 20090417
  2. ASPIRIN [Concomitant]
  3. BISOPROLOL FUMARATE [Concomitant]
  4. LISINOPRIL [Concomitant]

REACTIONS (1)
  - CONTUSION [None]
